FAERS Safety Report 3937814 (Version 2)
Quarter: 2013Q2

REPORT INFORMATION
  Report Type: Spontaneous
  Country: US (occurrence: None)
  Receive Date: 20030620
  Receipt Date: 20130118
  Transmission Date: 20140414
  Serious: Yes (Other)
  Sender: FDA-Public Use
  Company Number: A-US2003-02034

PATIENT
  Age: 60 Year
  Sex: Female

DRUGS (7)
  1. TRACLEER [Suspect]
     Indication: PULMONARY ARTERIAL HYPERTENSION
     Dosage: 62.5 MG, BID
     Route: 048
     Dates: start: 20021209, end: 20030112
  2. NIFEDIPINE [Concomitant]
  3. TRENTAL [Concomitant]
  4. SYNTHROID [Concomitant]
  5. TAGAMET [Concomitant]
  6. ZOLOFT [Concomitant]
  7. LORTAB [Concomitant]

REACTIONS (7)
  - ALANINE AMINOTRANSFERASE INCREASED [None]
  - ASPARTATE AMINOTRANSFERASE INCREASED [None]
  - BILIRUBIN CONJUGATED INCREASED [None]
  - LIVER FUNCTION TEST ABNORMAL [None]
  - BLOOD ALKALINE PHOSPHATASE INCREASED [None]
  - Malaise [None]
  - Blood bilirubin increased [None]
